FAERS Safety Report 8951438 (Version 1)
Quarter: 2012Q4

REPORT INFORMATION
  Report Type: 
  Country: CA (occurrence: CA)
  Receive Date: 20121204
  Receipt Date: 20121204
  Transmission Date: 20130627
  Serious: Yes (Death)
  Sender: FDA-Public Use
  Company Number: CA-CUBIST PHARMACEUTICAL, INC.-2012CBST000015

PATIENT

DRUGS (2)
  1. CUBICIN [Suspect]
     Indication: ENDOCARDITIS
     Dosage: UNK
     Route: 065
  2. LINEZOLID [Concomitant]
     Indication: ENDOCARDITIS

REACTIONS (1)
  - Treatment failure [Fatal]
